FAERS Safety Report 7670796-4 (Version None)
Quarter: 2011Q3

REPORT INFORMATION
  Report Type: 
  Country: None (occurrence: None)
  Receive Date: 20110803
  Receipt Date: 20110720
  Transmission Date: 20111222
  Serious: Yes (Other)
  Sender: FDA-Public Use
  Company Number: 2011P1007882

PATIENT
  Age: 64 Year
  Sex: Female
  Weight: 126.1 kg

DRUGS (17)
  1. PREDNISONE [Suspect]
     Dosage: 40 MG;
     Dates: start: 20110101
  2. PANTOPRAZOLE [Concomitant]
  3. IBUPROFEN [Concomitant]
  4. VICODIN [Suspect]
     Dosage: 1-2 TABLETS;Q6H;PO
     Route: 048
     Dates: start: 20110101
  5. SPIRIVA [Concomitant]
  6. FUROSEMIDE [Concomitant]
  7. SINGULAIR [Concomitant]
  8. MUCINEX [Concomitant]
  9. ONE A DAY MULTIVITAMIN [Concomitant]
  10. VITAMIN B-12 [Concomitant]
  11. PROTOPIC [Suspect]
     Indication: LICHEN PLANUS
     Dosage: ; PO
     Route: 048
     Dates: start: 20110621, end: 20110717
  12. ADVAIR DISKUS 100/50 [Concomitant]
  13. CRESTOR [Suspect]
     Indication: BLOOD CHOLESTEROL INCREASED
     Dosage: 5 MG; QD; PO
     Route: 048
  14. ZINC [Concomitant]
  15. FLUOCINONIDE [Suspect]
     Indication: LICHEN PLANUS
     Dosage: 0.5 TSP; TID - QID; PO
     Route: 048
     Dates: start: 20110621, end: 20110719
  16. POTASSIUM CHLOR [Concomitant]
  17. CALCIUM + VITAMIN D [Concomitant]

REACTIONS (15)
  - FEELING ABNORMAL [None]
  - LOCAL SWELLING [None]
  - DRUG ADMINISTERED AT INAPPROPRIATE SITE [None]
  - SOMNOLENCE [None]
  - APHAGIA [None]
  - CRYING [None]
  - SWELLING FACE [None]
  - LICHEN PLANUS [None]
  - SUICIDAL IDEATION [None]
  - MUSCLE SPASMS [None]
  - DRUG INEFFECTIVE [None]
  - WEIGHT DECREASED [None]
  - CHEST PAIN [None]
  - CONDITION AGGRAVATED [None]
  - INCORRECT ROUTE OF DRUG ADMINISTRATION [None]
